FAERS Safety Report 22144059 (Version 3)
Quarter: 2023Q1

REPORT INFORMATION
  Report Type: Report from Study
  Country: AU (occurrence: AU)
  Receive Date: 20230327
  Receipt Date: 20230329
  Transmission Date: 20230417
  Serious: Yes (Other)
  Sender: FDA-Public Use
  Company Number: AU-ABBVIE-4705435

PATIENT
  Age: 60 Year
  Sex: Male
  Weight: 69 kg

DRUGS (9)
  1. UPADACITINIB [Suspect]
     Active Substance: UPADACITINIB
     Indication: Product used for unknown indication
     Route: 048
     Dates: start: 20210318
  2. METHOTREXATE [Concomitant]
     Active Substance: METHOTREXATE
     Indication: Product used for unknown indication
     Route: 048
     Dates: start: 20200323, end: 20220414
  3. METHOTREXATE [Concomitant]
     Active Substance: METHOTREXATE
     Indication: Product used for unknown indication
     Route: 048
     Dates: start: 20220415, end: 20220721
  4. COVID-19 vaccine [Concomitant]
     Indication: Severe acute respiratory syndrome
     Dates: start: 20210810, end: 20210810
  5. COVID-19 vaccine [Concomitant]
     Indication: Severe acute respiratory syndrome
     Route: 030
     Dates: start: 20211102, end: 20211102
  6. COVID-19 vaccine [Concomitant]
     Indication: Severe acute respiratory syndrome
     Route: 030
     Dates: start: 20220220, end: 20220220
  7. COVID-19 vaccine [Concomitant]
     Indication: Severe acute respiratory syndrome
     Dates: start: 20221007, end: 20221007
  8. FOLIC ACID [Concomitant]
     Active Substance: FOLIC ACID
     Indication: Product used for unknown indication
     Route: 048
     Dates: start: 20200323
  9. Influenza virus vaccine, /old form/ [Concomitant]
     Indication: Product used for unknown indication
     Dosage: SEASONAL
     Dates: start: 20221017, end: 20221017

REACTIONS (1)
  - Dermal cyst [Recovered/Resolved]

NARRATIVE: CASE EVENT DATE: 20221230
